FAERS Safety Report 18920281 (Version 1)
Quarter: 2021Q1

REPORT INFORMATION
  Report Type: Spontaneous
  Country: GB (occurrence: GB)
  Receive Date: 20210222
  Receipt Date: 20210222
  Transmission Date: 20210420
  Serious: Yes (Other)
  Sender: FDA-Public Use
  Company Number: GB-JNJFOC-20210221043

PATIENT
  Age: 45 Year
  Sex: Female
  Weight: 98 kg

DRUGS (4)
  1. COLECALCIFEROL [Concomitant]
     Active Substance: CHOLECALCIFEROL
     Indication: VITAMIN D DECREASED
     Route: 065
     Dates: start: 20201217
  2. PARACETAMOL [Suspect]
     Active Substance: ACETAMINOPHEN
     Indication: PRODUCT USED FOR UNKNOWN INDICATION
     Route: 065
  3. INFLUENZA VIRUS [Concomitant]
     Active Substance: INFLUENZA VIRUS VACCINE
     Indication: PROPHYLAXIS
     Route: 065
     Dates: start: 20201218
  4. ASTRAZENECA COVID?19 VACCINE [Suspect]
     Active Substance: AZD-1222
     Indication: PRODUCT USED FOR UNKNOWN INDICATION
     Route: 065
     Dates: start: 20210207

REACTIONS (7)
  - Chills [Unknown]
  - Malaise [Recovering/Resolving]
  - Pyrexia [Recovered/Resolved]
  - Pain [Recovering/Resolving]
  - Poor quality sleep [Unknown]
  - Myalgia [Recovering/Resolving]
  - Injected limb mobility decreased [Recovering/Resolving]

NARRATIVE: CASE EVENT DATE: 20210207
